FAERS Safety Report 12118796 (Version 7)
Quarter: 2018Q3

REPORT INFORMATION
  Report Type: Spontaneous
  Country: US (occurrence: US)
  Receive Date: 20160226
  Receipt Date: 20180713
  Transmission Date: 20181010
  Serious: Yes (Other)
  Sender: FDA-Public Use
  Company Number: PHEH2016US004687

PATIENT
  Age: 31 Year
  Sex: Female
  Weight: 61.68 kg

DRUGS (1)
  1. ZOFRAN [Suspect]
     Active Substance: ONDANSETRON HYDROCHLORIDE
     Indication: VOMITING IN PREGNANCY
     Dosage: PRN
     Route: 048
     Dates: start: 20040927, end: 200504

REACTIONS (30)
  - Nephrotic syndrome [Unknown]
  - Pulmonary oedema [Unknown]
  - Hypercalcaemia [Unknown]
  - Thrombocytopenia [Unknown]
  - Proteinuria [Unknown]
  - Scoliosis [Unknown]
  - Sinus tachycardia [Unknown]
  - Premature delivery [Unknown]
  - Gestational hypertension [Unknown]
  - Hypertensive encephalopathy [Unknown]
  - Appendicitis [Unknown]
  - Injury [Unknown]
  - Pain [Unknown]
  - Product use in unapproved indication [Unknown]
  - Cardiac failure congestive [Unknown]
  - Oligohydramnios [Unknown]
  - Pre-eclampsia [Unknown]
  - Eclampsia [Unknown]
  - Ovarian cyst [Unknown]
  - Seizure [Unknown]
  - Pleural effusion [Unknown]
  - Maternal exposure during pregnancy [Unknown]
  - Emotional distress [Unknown]
  - Orthopnoea [Unknown]
  - Dyspnoea [Unknown]
  - Brain oedema [Unknown]
  - Dyspnoea paroxysmal nocturnal [Unknown]
  - Anxiety [Unknown]
  - HELLP syndrome [Unknown]
  - Anaemia [Unknown]

NARRATIVE: CASE EVENT DATE: 20050410
